FAERS Safety Report 21587238 (Version 1)
Quarter: 2022Q4

REPORT INFORMATION
  Report Type: Spontaneous
  Country: CN (occurrence: CN)
  Receive Date: 20221114
  Receipt Date: 20221114
  Transmission Date: 20230113
  Serious: Yes (Other)
  Sender: FDA-Public Use
  Company Number: None

PATIENT
  Age: 66 Year
  Sex: Female
  Weight: 60 kg

DRUGS (4)
  1. CYCLOPHOSPHAMIDE [Suspect]
     Active Substance: CYCLOPHOSPHAMIDE
     Indication: Breast cancer female
     Dosage: 0.95G, QD, DILUTED WITH 0.9% SODIUM CHLORIDE 50ML
     Route: 041
     Dates: start: 20221011, end: 20221011
  2. SODIUM CHLORIDE [Suspect]
     Active Substance: SODIUM CHLORIDE
     Indication: Medication dilution
     Dosage: 50ML, QD, USED TO DILUTE 0.95G CYCLOPHOSPHAMIDE
     Route: 041
     Dates: start: 20221011, end: 20221011
  3. SODIUM CHLORIDE [Suspect]
     Active Substance: SODIUM CHLORIDE
     Dosage: 250ML, QD, USED TO DILUTE 120MG DOCETAXEL
     Route: 041
     Dates: start: 20221011, end: 20221011
  4. DOCETAXEL [Suspect]
     Active Substance: DOCETAXEL
     Indication: Breast cancer female
     Dosage: 0.12 G, QD, DILUTED WITH 0.9% SODIUM CHLORIDE 250ML
     Route: 041
     Dates: start: 20221011, end: 20221011

REACTIONS (1)
  - White blood cell count decreased [Recovered/Resolved]

NARRATIVE: CASE EVENT DATE: 20221023
